FAERS Safety Report 6492956-0 (Version None)
Quarter: 2009Q4

REPORT INFORMATION
  Report Type: 
  Country: None (occurrence: None)
  Receive Date: 20091211
  Receipt Date: 20091211
  Transmission Date: 20100525
  Serious: Yes (Other)
  Sender: FDA-Public Use
  Company Number: None

PATIENT
  Age: 70 Year
  Sex: Male

DRUGS (1)
  1. TORISEL [Suspect]
     Indication: RENAL CANCER
     Dosage: 25MG WEEKLY IV DRIP
     Route: 041
     Dates: start: 20091103, end: 20091103

REACTIONS (3)
  - DYSPEPSIA [None]
  - INFUSION RELATED REACTION [None]
  - SKIN DISCOLOURATION [None]
